FAERS Safety Report 12161145 (Version 2)
Quarter: 2016Q2

REPORT INFORMATION
  Report Type: Spontaneous
  Country: US (occurrence: US)
  Receive Date: 20160308
  Receipt Date: 20160407
  Transmission Date: 20160815
  Serious: No
  Sender: FDA-Public Use
  Company Number: US-CELGENEUS-USA-2016031075

PATIENT
  Sex: Female
  Weight: 56.75 kg

DRUGS (1)
  1. POMALYST [Suspect]
     Active Substance: POMALIDOMIDE
     Indication: PLASMA CELL MYELOMA
     Dosage: 4 MILLIGRAM
     Route: 048
     Dates: start: 201509

REACTIONS (3)
  - Gastrointestinal disorder [Not Recovered/Not Resolved]
  - Influenza [Recovered/Resolved]
  - Bronchitis [Not Recovered/Not Resolved]
